FAERS Safety Report 5969711-0 (Version None)
Quarter: 2008Q4

REPORT INFORMATION
  Report Type: 
  Country: None (occurrence: None)
  Receive Date: 20081126
  Receipt Date: 20081118
  Transmission Date: 20090506
  Serious: Yes (Hospitalization, Other)
  Sender: FDA-Public Use
  Company Number: JP-PFIZER INC-2008087417

PATIENT
  Sex: Female
  Weight: 88 kg

DRUGS (7)
  1. UNASYN [Suspect]
     Indication: PNEUMONIA
     Route: 042
     Dates: start: 20081005, end: 20081009
  2. PERDIPINE [Suspect]
     Indication: HYPERTENSION
     Dosage: DAILY DOSE:48ML
     Route: 042
     Dates: start: 20081002, end: 20081002
  3. PERDIPINE [Suspect]
     Dosage: DAILY DOSE:120ML
     Route: 042
     Dates: start: 20081003, end: 20081004
  4. PERDIPINE [Suspect]
     Dosage: DAILY DOSE:144ML
     Route: 042
     Dates: start: 20081005, end: 20081007
  5. PERDIPINE [Suspect]
     Dosage: DAILY DOSE:168ML
     Route: 042
     Dates: start: 20081007, end: 20081008
  6. CAPTOPRIL [Suspect]
     Indication: HYPERTENSION
     Route: 048
  7. METHERGINE [Concomitant]
     Route: 048
     Dates: start: 20081007, end: 20081007

REACTIONS (1)
  - LARYNGEAL OEDEMA [None]
